APPROVED DRUG PRODUCT: DOXYCYCLINE
Active Ingredient: DOXYCYCLINE
Strength: EQ 50MG BASE
Dosage Form/Route: CAPSULE;ORAL
Application: A065055 | Product #001 | TE Code: AB
Applicant: STRIDES PHARMA INTERNATIONAL AG
Approved: Dec 1, 2000 | RLD: No | RS: No | Type: RX